FAERS Safety Report 15044517 (Version 6)
Quarter: 2018Q3

REPORT INFORMATION
  Report Type: Spontaneous
  Country: CA (occurrence: CA)
  Receive Date: 20180621
  Receipt Date: 20180925
  Transmission Date: 20181010
  Serious: Yes (Other)
  Sender: FDA-Public Use
  Company Number: CA-CELLTRION INC.-2018CA020608

PATIENT

DRUGS (14)
  1. INFLECTRA [Suspect]
     Active Substance: INFLIXIMAB-DYYB
     Dosage: 400 MG, 6 WEEKS AFTER LAST   INFUSION; INTRAVENOUS
     Route: 042
     Dates: start: 20180723
  2. PREDNISONE. [Concomitant]
     Active Substance: PREDNISONE
     Dosage: UNK
  3. INFLECTRA [Suspect]
     Active Substance: INFLIXIMAB-DYYB
     Dosage: 400 MG, CYCLIC (EVERY 2, 6WEEKS, THEN EVERY 8 WEEKS)
     Route: 042
     Dates: start: 20180612
  4. SOLU?MEDROL [Concomitant]
     Active Substance: METHYLPREDNISOLONE SODIUM SUCCINATE
     Dosage: UNK
  5. METRONIDAZOLE                      /00012502/ [Concomitant]
  6. FERROUS GLUCONATE ARROW [Concomitant]
     Dosage: UNK
  7. INFLECTRA [Suspect]
     Active Substance: INFLIXIMAB-DYYB
     Dosage: 400 MG, CYCLIC (EVERY 2, 6WEEKS, THEN EVERY 8 WEEKS)
     Route: 042
     Dates: start: 20180612
  8. INFLECTRA [Suspect]
     Active Substance: INFLIXIMAB-DYYB
     Dosage: 400 MG, 6 WEEKS AFTER LAST   INFUSION; INTRAVENOUS
     Route: 042
     Dates: start: 20180723
  9. VENTOL                             /00012201/ [Concomitant]
     Dosage: UNK
  10. INFLECTRA [Suspect]
     Active Substance: INFLIXIMAB-DYYB
     Indication: COLITIS ULCERATIVE
     Dosage: 400 MG, CYCLIC (EVERY 2, 6WEEKS, THEN EVERY 8 WEEKS)
     Route: 042
     Dates: start: 20180527
  11. INFLECTRA [Suspect]
     Active Substance: INFLIXIMAB-DYYB
     Dosage: 400 MG, 6 WEEKS THE EVERY 8 WEEKS)
     Route: 042
     Dates: start: 20180910
  12. METHOTREXATE. [Concomitant]
     Active Substance: METHOTREXATE
     Dosage: UNK
  13. VENTOLIN [Concomitant]
     Active Substance: ALBUTEROL SULFATE
     Dosage: UNK
  14. MESALAMINE. [Concomitant]
     Active Substance: MESALAMINE
     Dosage: UNK
     Dates: start: 201804

REACTIONS (8)
  - Peripheral swelling [Recovering/Resolving]
  - Vasculitis [Recovering/Resolving]
  - Dysphagia [Unknown]
  - Headache [Recovered/Resolved]
  - Pain in extremity [Unknown]
  - Condition aggravated [Unknown]
  - Rectal haemorrhage [Recovered/Resolved]
  - Pruritus [Recovered/Resolved]

NARRATIVE: CASE EVENT DATE: 20180612
